FAERS Safety Report 7927030-7 (Version None)
Quarter: 2011Q4

REPORT INFORMATION
  Report Type: 
  Country: None (occurrence: None)
  Receive Date: 20111118
  Receipt Date: 20111111
  Transmission Date: 20120403
  Serious: Yes (Death, Hospitalization)
  Sender: FDA-Public Use
  Company Number: DE-BRISTOL-MYERS SQUIBB COMPANY-16227878

PATIENT
  Age: 73 Year
  Sex: Female
  Weight: 36 kg

DRUGS (1)
  1. PACLITAXEL [Suspect]
     Indication: GASTRIC CANCER
     Dosage: ON DAYS 1,8 AND 15 EVERY 4 WEEK CYCLE(28DAYS).LAST DOSE ON 11AUG11
     Route: 042
     Dates: start: 20110708

REACTIONS (2)
  - DEHYDRATION [None]
  - OESOPHAGITIS [None]
